FAERS Safety Report 21172000 (Version 2)
Quarter: 2022Q3

REPORT INFORMATION
  Report Type: Spontaneous
  Country: US (occurrence: US)
  Receive Date: 20220804
  Receipt Date: 20220805
  Transmission Date: 20221027
  Serious: Yes (Life-Threatening)
  Sender: FDA-Public Use
  Company Number: US-PFIZER INC-202201030057

PATIENT
  Age: 47 Year
  Sex: Female

DRUGS (3)
  1. PAXLOVID [Suspect]
     Active Substance: NIRMATRELVIR\RITONAVIR
     Indication: COVID-19 treatment
     Dosage: UNK, 2X/DAY
     Dates: start: 20220726, end: 20220727
  2. IBUPROFEN [Concomitant]
     Active Substance: IBUPROFEN
     Dosage: UNK
     Dates: start: 20220726
  3. PSEUDOEPHEDRINE [Concomitant]
     Active Substance: PSEUDOEPHEDRINE
     Dosage: UNK
     Dates: start: 20220726

REACTIONS (9)
  - Chest discomfort [Recovered/Resolved]
  - Obstructive airways disorder [Recovered/Resolved]
  - Pruritus [Recovered/Resolved]
  - Erythema [Recovered/Resolved]
  - Urticaria [Recovered/Resolved]
  - Eructation [Unknown]
  - Lip swelling [Unknown]
  - Pharyngeal swelling [Unknown]
  - Throat tightness [Unknown]

NARRATIVE: CASE EVENT DATE: 20220726
